FAERS Safety Report 8392716-X (Version None)
Quarter: 2012Q2

REPORT INFORMATION
  Report Type: 
  Country: None (occurrence: None)
  Receive Date: 20120529
  Receipt Date: 20120521
  Transmission Date: 20120825
  Serious: Yes (Hospitalization, Other)
  Sender: FDA-Public Use
  Company Number: US-ELI_LILLY_AND_COMPANY-US201205008139

PATIENT
  Sex: Male

DRUGS (3)
  1. THYROID THERAPY [Concomitant]
     Indication: THYROID DISORDER
     Dosage: 225 MG, QD
  2. HUMALOG [Suspect]
     Indication: DIABETES MELLITUS
     Dosage: 15 U, TID
     Dates: start: 20111101
  3. LANTUS [Concomitant]
     Dosage: 45 U, EACH EVENING

REACTIONS (7)
  - BLINDNESS [None]
  - CHEST PAIN [None]
  - PHOTOPSIA [None]
  - EYE HAEMORRHAGE [None]
  - MUSCLE STRAIN [None]
  - BLOOD GLUCOSE DECREASED [None]
  - VITREOUS FLOATERS [None]
